FAERS Safety Report 8271455-X (Version None)
Quarter: 2012Q2

REPORT INFORMATION
  Report Type: 
  Country: None (occurrence: None)
  Receive Date: 20120410
  Receipt Date: 20120329
  Transmission Date: 20120825
  Serious: Yes (Death, Hospitalization)
  Sender: FDA-Public Use
  Company Number: US-SANOFI-AVENTIS-2012SA022202

PATIENT
  Age: 74 Year
  Sex: Male
  Weight: 68.93 kg

DRUGS (15)
  1. LORAZEPAM [Concomitant]
     Indication: ANXIETY
  2. BLINDED THERAPY [Suspect]
     Indication: NON-SMALL CELL LUNG CANCER STAGE IV
     Route: 042
     Dates: start: 20120313
  3. CALCIUM CARBONATE/ERGOCALCIFEROL [Concomitant]
     Indication: NUTRITIONAL SUPPORT
  4. FENOFIBRATE [Concomitant]
  5. METFORMIN HCL [Concomitant]
  6. DOCETAXEL [Suspect]
     Indication: NON-SMALL CELL LUNG CANCER STAGE IV
     Route: 041
     Dates: start: 20120313, end: 20120313
  7. NEXIUM [Concomitant]
     Dates: start: 20110726
  8. MULTI-VITAMINS [Concomitant]
     Indication: VITAMIN SUPPLEMENTATION
  9. VALSARTAN [Concomitant]
     Indication: HYPERTENSION
  10. MEGESTROL ACETATE [Concomitant]
     Indication: DECREASED APPETITE
  11. ASPIRIN [Concomitant]
  12. SUCRALFATE [Concomitant]
     Indication: ULCER
  13. LACTULOSE [Concomitant]
     Indication: CONSTIPATION
  14. SERTRALINE HYDROCHLORIDE [Concomitant]
     Indication: DEPRESSION
     Dates: start: 20120313
  15. VICODIN [Concomitant]
     Indication: PAIN
     Dates: start: 20110426

REACTIONS (2)
  - DIARRHOEA [None]
  - DEATH [None]
